FAERS Safety Report 5149908-2 (Version None)
Quarter: 2006Q4

REPORT INFORMATION
  Report Type: 
  Country: None (occurrence: None)
  Receive Date: 20061108
  Receipt Date: 20060901
  Transmission Date: 20070319
  Serious: Yes (Other)
  Sender: FDA-Public Use
  Company Number: 2006061321

PATIENT
  Age: 58 Year
  Sex: Female

DRUGS (4)
  1. CELEBREX [Suspect]
     Indication: ARTHRITIS
     Dosage: 200 MG (200 MG, 1 IN 1 D), ORAL
     Route: 048
     Dates: start: 20040101
  2. BEXTRA [Suspect]
     Indication: ARTHRITIS
     Dosage: 1 D, ORAL
     Route: 048
     Dates: start: 20041206
  3. IBANDRONATE SODIUM (IBANDRONATE SODIUM) [Suspect]
     Indication: ILL-DEFINED DISORDER
  4. VIOXX [Suspect]
     Indication: ILL-DEFINED DISORDER
     Dates: start: 20030101

REACTIONS (5)
  - BLINDNESS [None]
  - HEADACHE [None]
  - INFLUENZA LIKE ILLNESS [None]
  - MAJOR DEPRESSION [None]
  - STEVENS-JOHNSON SYNDROME [None]
